FAERS Safety Report 19571540 (Version 1)
Quarter: 2021Q3

REPORT INFORMATION
  Report Type: Spontaneous
  Country: US (occurrence: US)
  Receive Date: 20210716
  Receipt Date: 20210716
  Transmission Date: 20211014
  Serious: Yes (Other)
  Sender: FDA-Public Use
  Company Number: US-ASTRAZENECA-2021A625524

PATIENT

DRUGS (9)
  1. NEXIUM 24HR [Suspect]
     Active Substance: ESOMEPRAZOLE MAGNESIUM
     Indication: HYPERCHLORHYDRIA
     Dosage: 20 MG, QD
     Route: 048
     Dates: start: 2014
  2. PREVACID [Suspect]
     Active Substance: LANSOPRAZOLE
     Indication: PRODUCT USED FOR UNKNOWN INDICATION
     Dosage: UNK
     Route: 065
  3. NEXIUM [Suspect]
     Active Substance: ESOMEPRAZOLE MAGNESIUM
     Indication: HYPERCHLORHYDRIA
     Dosage: 20 MG, QD
     Route: 048
     Dates: start: 2014
  4. PRILOSEC OTC [Suspect]
     Active Substance: OMEPRAZOLE MAGNESIUM
     Indication: DYSPEPSIA
     Dosage: 20 MG, QD
     Route: 048
     Dates: start: 2004, end: 2013
  5. PRILOSEC OTC [Suspect]
     Active Substance: OMEPRAZOLE MAGNESIUM
     Indication: HYPERCHLORHYDRIA
     Dosage: 20 MG, QD
     Route: 048
     Dates: start: 2004, end: 2013
  6. PREVACID 24 HR [Suspect]
     Active Substance: LANSOPRAZOLE
     Indication: HYPERCHLORHYDRIA
     Dosage: 30 MG, BID
     Route: 065
     Dates: start: 2009, end: 2013
  7. PREVACID 24 HR [Suspect]
     Active Substance: LANSOPRAZOLE
     Indication: DYSPEPSIA
     Dosage: 30 MG, BID
     Route: 065
     Dates: start: 2009, end: 2013
  8. NEXIUM 24HR [Suspect]
     Active Substance: ESOMEPRAZOLE MAGNESIUM
     Indication: DYSPEPSIA
     Dosage: 20 MG, QD
     Route: 048
     Dates: start: 2014
  9. NEXIUM [Suspect]
     Active Substance: ESOMEPRAZOLE MAGNESIUM
     Indication: DYSPEPSIA
     Dosage: 20 MG, QD
     Route: 048
     Dates: start: 2014

REACTIONS (23)
  - End stage renal disease [Unknown]
  - Nephrogenic anaemia [Unknown]
  - Dialysis [Unknown]
  - Device dependence [Unknown]
  - Chronic kidney disease [Unknown]
  - Nephrosclerosis [Unknown]
  - Acute kidney injury [Unknown]
  - Albuminuria [Unknown]
  - Peritoneal dialysis [Unknown]
  - Renal impairment [Unknown]
  - Nephrolithiasis [Unknown]
  - Dysuria [Unknown]
  - Diabetic nephropathy [Unknown]
  - Urethral disorder [Unknown]
  - Azotaemia [Unknown]
  - Renal failure [Unknown]
  - Proteinuria [Unknown]
  - Haematuria [Unknown]
  - Renal transplant [Unknown]
  - Haemodialysis [Unknown]
  - Micturition urgency [Unknown]
  - Urethral stenosis [Unknown]
  - Nephropathy [Unknown]
